FAERS Safety Report 19948189 (Version 2)
Quarter: 2022Q1

REPORT INFORMATION
  Report Type: Spontaneous
  Country: FI (occurrence: FI)
  Receive Date: 20211013
  Receipt Date: 20220120
  Transmission Date: 20220423
  Serious: Yes (Other)
  Sender: FDA-Public Use
  Company Number: FI-BAYER-2021A225151

PATIENT

DRUGS (1)
  1. EYLEA [Suspect]
     Active Substance: AFLIBERCEPT
     Indication: Neovascular age-related macular degeneration
     Dosage: LEFT EYE

REACTIONS (3)
  - Blindness [Unknown]
  - Retinal pigment epitheliopathy [Unknown]
  - Detachment of retinal pigment epithelium [Unknown]
